FAERS Safety Report 22131020 (Version 1)
Quarter: 2023Q1

REPORT INFORMATION
  Report Type: Spontaneous
  Country: US (occurrence: US)
  Receive Date: 20230323
  Receipt Date: 20230323
  Transmission Date: 20230418
  Serious: Yes (Hospitalization, Other)
  Sender: FDA-Public Use
  Company Number: US-SA-SAC20230321000292

PATIENT
  Sex: Female

DRUGS (4)
  1. ENJAYMO [Suspect]
     Active Substance: SUTIMLIMAB-JOME
     Indication: Cold type haemolytic anaemia
     Dosage: 6500 MG, QW
     Route: 041
     Dates: start: 202209, end: 2022
  2. ENJAYMO [Suspect]
     Active Substance: SUTIMLIMAB-JOME
     Dosage: 6500 MG, QOW
     Route: 041
     Dates: start: 2022, end: 20230111
  3. ENJAYMO [Suspect]
     Active Substance: SUTIMLIMAB-JOME
     Dosage: 6500 MG, QW
     Route: 041
     Dates: start: 20230309, end: 20230316
  4. ENJAYMO [Suspect]
     Active Substance: SUTIMLIMAB-JOME
     Dosage: 6500 MG, QOW
     Route: 041
     Dates: start: 202303

REACTIONS (5)
  - Sepsis [Recovering/Resolving]
  - Haemoglobin decreased [Recovering/Resolving]
  - Vomiting [Recovering/Resolving]
  - Diarrhoea [Recovering/Resolving]
  - Intentional dose omission [Unknown]

NARRATIVE: CASE EVENT DATE: 20230101
